FAERS Safety Report 11198230 (Version 2)
Quarter: 2015Q3

REPORT INFORMATION
  Report Type: Report from Study
  Country: US (occurrence: US)
  Receive Date: 20150618
  Receipt Date: 20150730
  Transmission Date: 20151125
  Serious: Yes (Other)
  Sender: FDA-Public Use
  Company Number: US-AMGEN-USASL2015058642

PATIENT
  Age: 53 Year
  Sex: Female

DRUGS (1)
  1. ENBREL [Suspect]
     Active Substance: ETANERCEPT
     Indication: RHEUMATOID ARTHRITIS
     Dosage: 50 MG, ONCE WEELY
     Route: 065
     Dates: start: 20150505

REACTIONS (3)
  - Oropharyngeal pain [Recovered/Resolved]
  - Nasopharyngitis [Recovered/Resolved]
  - Cataract operation [Unknown]

NARRATIVE: CASE EVENT DATE: 2015
